FAERS Safety Report 9379022 (Version 1)
Quarter: 2013Q2

REPORT INFORMATION
  Report Type: Spontaneous
  Country: US (occurrence: None)
  Receive Date: 20130626
  Receipt Date: 20130626
  Transmission Date: 20140414
  Serious: Yes (Life-Threatening, Hospitalization)
  Sender: FDA-Public Use
  Company Number: ADE13-014

PATIENT
  Age: 51 Year
  Sex: Female
  Weight: 124 kg

DRUGS (8)
  1. HEPARIN SODIUM INJECTION [Suspect]
     Indication: CATHETERISATION CARDIAC
     Route: 042
     Dates: start: 20130129, end: 20130129
  2. HEPARIN SODIUM INJECTION [Suspect]
     Indication: CORONARY ARTERY BYPASS
     Dosage: 5000 UNITS TOTAL DOSE
     Route: 042
     Dates: start: 20130131, end: 20130131
  3. HEPARIN SODIUM INJECTION [Suspect]
     Indication: ENDARTERECTOMY
     Dosage: 5000 UNITS TOTAL DOSE
     Route: 042
     Dates: start: 20130131, end: 20130131
  4. ASPIRIN [Concomitant]
  5. METOPROLOL [Concomitant]
  6. HYDROCODONE/ACETAMINOPHEN [Concomitant]
  7. PRAVASTATIN [Concomitant]
  8. NAPROXEN [Concomitant]

REACTIONS (4)
  - Deep vein thrombosis [None]
  - Heparin-induced thrombocytopenia [None]
  - Gangrene [None]
  - Postoperative thoracic procedure complication [None]
